FAERS Safety Report 5584692-X (Version None)
Quarter: 2008Q1

REPORT INFORMATION
  Report Type: 
  Country: None (occurrence: None)
  Receive Date: 20080108
  Receipt Date: 20071227
  Transmission Date: 20080703
  Serious: Yes (Other)
  Sender: FDA-Public Use
  Company Number: US-PFIZER INC-2007071479

PATIENT
  Sex: Male
  Weight: 117.9 kg

DRUGS (10)
  1. CHANTIX [Suspect]
     Indication: SMOKING CESSATION THERAPY
     Dosage: TEXT:EVERY DAY
     Dates: start: 20070101, end: 20070101
  2. HYDROCODONE [Suspect]
     Indication: PAIN
  3. ATIVAN [Concomitant]
  4. HYDROCHLOROTHIAZIDE [Concomitant]
  5. LIPITOR [Concomitant]
  6. MAGNESIUM [Concomitant]
  7. PRILOSEC [Concomitant]
  8. TIZANIDINE HCL [Concomitant]
  9. ACETYLSALICYLIC ACID SRT [Concomitant]
  10. ATACAND [Concomitant]

REACTIONS (7)
  - ABDOMINAL PAIN [None]
  - CONSTIPATION [None]
  - DEPRESSION [None]
  - HOMICIDAL IDEATION [None]
  - INSOMNIA [None]
  - NAUSEA [None]
  - SUICIDAL IDEATION [None]
